FAERS Safety Report 4711556-3 (Version None)
Quarter: 2005Q3

REPORT INFORMATION
  Report Type: 
  Country: None (occurrence: None)
  Receive Date: 20050708
  Receipt Date: 20050708
  Transmission Date: 20060218
  Serious: Yes (Hospitalization)
  Sender: FDA-Public Use
  Company Number: None

PATIENT
  Age: 35 Year
  Sex: Female

DRUGS (1)
  1. ZOLOFT [Suspect]
     Indication: ANXIETY
     Dosage: DOSE? PO Q DAY [~ 2 WEEKS PRIOR TO EVEN]
     Route: 048

REACTIONS (3)
  - ASTHENIA [None]
  - HYPONATRAEMIA [None]
  - TREMOR [None]
